FAERS Safety Report 12582266 (Version 1)
Quarter: 2016Q3

REPORT INFORMATION
  Report Type: Spontaneous
  Country: US (occurrence: US)
  Receive Date: 20160722
  Receipt Date: 20160722
  Transmission Date: 20161109
  Serious: Yes (Hospitalization)
  Sender: FDA-Public Use
  Company Number: US-BAYER-2016-140321

PATIENT
  Sex: Female

DRUGS (1)
  1. ALEVE [Suspect]
     Active Substance: NAPROXEN SODIUM
     Dosage: UNK
     Route: 048

REACTIONS (4)
  - Abdominal distension [Recovered/Resolved]
  - Adverse drug reaction [None]
  - Vomiting [Recovered/Resolved]
  - Dyspnoea [None]

NARRATIVE: CASE EVENT DATE: 2006
